FAERS Safety Report 19845243 (Version 1)
Quarter: 2021Q3

REPORT INFORMATION
  Report Type: Spontaneous
  Country: CN (occurrence: CN)
  Receive Date: 20210917
  Receipt Date: 20210917
  Transmission Date: 20211014
  Serious: Yes (Hospitalization)
  Sender: FDA-Public Use
  Company Number: CN-ASTRAZENECA-2021A715441

PATIENT
  Age: 61 Year
  Sex: Male
  Weight: 50 kg

DRUGS (3)
  1. IMFINZI [Suspect]
     Active Substance: DURVALUMAB
     Indication: NON-SMALL CELL LUNG CANCER STAGE III
     Dosage: THE LAST DOSE OF MEDICATION WAS 500MG / CYCLE, USAGE SPECIFICATION: 500MG/10ML.
     Route: 042
     Dates: start: 20210407, end: 20210427
  2. IMFINZI [Suspect]
     Active Substance: DURVALUMAB
     Indication: NON-SMALL CELL LUNG CANCER STAGE III
     Dosage: THE LAST DOSE OF MEDICATION WAS 500MG / CYCLE, USAGE SPECIFICATION: 500MG/10ML.
     Route: 042
     Dates: start: 202107
  3. SYMBICORT [Suspect]
     Active Substance: BUDESONIDE\FORMOTEROL FUMARATE DIHYDRATE
     Route: 055

REACTIONS (1)
  - Radiation pneumonitis [Recovering/Resolving]
